FAERS Safety Report 12690462 (Version 1)
Quarter: 2016Q3

REPORT INFORMATION
  Report Type: Spontaneous
  Country: GB (occurrence: GB)
  Receive Date: 20160826
  Receipt Date: 20160826
  Transmission Date: 20161109
  Serious: Yes (Other)
  Sender: FDA-Public Use
  Company Number: GB-B. BRAUN MEDICAL INC.-1056782

PATIENT
  Age: 24 Month
  Sex: Male

DRUGS (2)
  1. BAXTER HEPARIN SODIUM BP INFUSION 1000IU/L [Suspect]
     Active Substance: HEPARIN SODIUM
     Dates: start: 20160728
  2. SODIUM CHLORIDE. [Suspect]
     Active Substance: SODIUM CHLORIDE
     Indication: CATHETER MANAGEMENT
     Dates: start: 20160728

REACTIONS (5)
  - Haemorrhage [None]
  - Bleeding time prolonged [None]
  - Blood pressure systolic decreased [None]
  - Overdose [None]
  - Complication associated with device [None]
